FAERS Safety Report 8809922 (Version 1)
Quarter: 2012Q4

REPORT INFORMATION
  Report Type: Report from Study
  Country: BR (occurrence: BR)
  Receive Date: 20120926
  Receipt Date: 20120926
  Transmission Date: 20130627
  Serious: Yes (Hospitalization)
  Sender: FDA-Public Use
  Company Number: BR-ASTRAZENECA-2012SE73705

PATIENT
  Sex: Male

DRUGS (11)
  1. AZD6140 [Suspect]
     Indication: CORONARY ARTERY DISEASE
     Route: 048
     Dates: start: 20120516, end: 20120914
  2. AZD6140 [Suspect]
     Indication: CORONARY ARTERY DISEASE
     Route: 048
     Dates: start: 20120919
  3. MELOXICAN [Suspect]
     Route: 065
  4. MONOCORDIL [Concomitant]
     Indication: CORONARY ARTERY DISEASE
     Route: 048
     Dates: start: 20120905
  5. SINVASTATIN [Concomitant]
     Indication: CORONARY ARTERY DISEASE
     Route: 048
  6. ENALAPRIL [Concomitant]
     Indication: HYPERTENSION
     Route: 048
     Dates: end: 20120905
  7. ENALAPRIL [Concomitant]
     Indication: HYPERTENSION
     Route: 048
     Dates: start: 20120905
  8. ATENOLOL [Concomitant]
     Indication: HYPERTENSION
     Route: 048
  9. HIDROCLOTIAZIDA [Concomitant]
     Indication: HYPERTENSION
  10. LOSARTAN [Concomitant]
     Indication: HYPERTENSION
     Route: 048
     Dates: end: 20120905
  11. ASA [Concomitant]
     Route: 048

REACTIONS (1)
  - Renal failure [Not Recovered/Not Resolved]
